FAERS Safety Report 7820314-2 (Version None)
Quarter: 2011Q4

REPORT INFORMATION
  Report Type: 
  Country: None (occurrence: None)
  Receive Date: 20111018
  Receipt Date: 20111006
  Transmission Date: 20120403
  Serious: Yes (Hospitalization)
  Sender: FDA-Public Use
  Company Number: DE-ROCHE-1002788

PATIENT
  Age: 65 Year
  Sex: Male
  Weight: 70 kg

DRUGS (14)
  1. DEXAMETHASONE [Concomitant]
     Dates: start: 20101013
  2. ZOFRAN [Concomitant]
     Dates: start: 20110616
  3. CLEMASTINE FUMARATE [Concomitant]
     Dosage: 1/2 MG
     Dates: start: 20101201, end: 20101201
  4. FRAXIPARIN [Concomitant]
     Dates: start: 20101013
  5. BAYOTENSIN [Concomitant]
     Dates: start: 20110601
  6. IRINOTECAN HCL [Suspect]
     Indication: GLIOBLASTOMA
     Dosage: MG, LAST DOSE OF SAE: 7 SEP 2011
     Route: 042
     Dates: start: 20101229
  7. ZENTROPIL [Concomitant]
     Dates: start: 20101013, end: 20101111
  8. KEPPRA [Concomitant]
     Dates: start: 20101112
  9. ZANTAC [Concomitant]
     Dosage: 1/50 MG
     Dates: start: 20101201, end: 20101201
  10. AVASTIN [Suspect]
     Indication: GLIOBLASTOMA
     Dosage: MG, LAST DOSE OF SAE 7 SEP 2011
     Route: 042
     Dates: start: 20101117
  11. FINASTERID [Concomitant]
     Dates: start: 20101013
  12. SANDOCAL-D [Concomitant]
     Dates: start: 20101013
  13. NEXIUM [Concomitant]
     Dates: start: 20101013, end: 20101102
  14. NOVALGIN [Concomitant]
     Dates: start: 20101102

REACTIONS (1)
  - PANIC ATTACK [None]
